FAERS Safety Report 9684471 (Version 2)
Quarter: 2013Q4

REPORT INFORMATION
  Report Type: Spontaneous
  Country: JP (occurrence: JP)
  Receive Date: 20131112
  Receipt Date: 20131126
  Transmission Date: 20140711
  Serious: Yes (Hospitalization)
  Sender: FDA-Public Use
  Company Number: JP-B.I. PHARMACEUTICALS,INC./RIDGEFIELD-2013-BI-36417NB

PATIENT
  Age: 76 Year
  Sex: Male

DRUGS (7)
  1. MICARDIS [Suspect]
     Indication: HYPERTENSION
     Dosage: 40 MG
     Route: 048
  2. CALBLOCK [Concomitant]
     Dosage: 16 MG
     Route: 048
  3. BAYASPIRIN [Concomitant]
     Dosage: 10 MG
     Route: 048
  4. PLAVIX [Concomitant]
     Dosage: 75 MG
     Route: 065
  5. GASTER D [Concomitant]
     Dosage: 20 MG
     Route: 065
  6. NATRIX [Concomitant]
     Dosage: 1 MG
     Route: 065
  7. CRESTOR [Concomitant]
     Dosage: 25 MG
     Route: 065

REACTIONS (2)
  - Corneal degeneration [Not Recovered/Not Resolved]
  - Product quality issue [Unknown]
